FAERS Safety Report 25135018 (Version 2)
Quarter: 2025Q2

REPORT INFORMATION
  Report Type: Spontaneous
  Country: CZ (occurrence: CZ)
  Receive Date: 20250328
  Receipt Date: 20250428
  Transmission Date: 20250716
  Serious: Yes (Life-Threatening, Hospitalization, Other)
  Sender: NOVARTIS
  Company Number: CZ-002147023-NVSC2025CZ051772

PATIENT
  Sex: Male

DRUGS (4)
  1. DABRAFENIB [Suspect]
     Active Substance: DABRAFENIB
     Indication: Malignant melanoma
     Dosage: 75 MG, BID
     Route: 065
     Dates: start: 202009
  2. DABRAFENIB [Suspect]
     Active Substance: DABRAFENIB
     Route: 065
     Dates: start: 202111
  3. TRAMETINIB [Suspect]
     Active Substance: TRAMETINIB
     Indication: Malignant melanoma
     Dosage: 2 MG, QD
     Route: 065
     Dates: start: 202009
  4. TRAMETINIB [Suspect]
     Active Substance: TRAMETINIB
     Route: 065
     Dates: start: 202111

REACTIONS (12)
  - Liver function test increased [Not Recovered/Not Resolved]
  - Alcohol poisoning [Recovered/Resolved]
  - Blood bilirubin increased [Recovered/Resolved]
  - Fall [Unknown]
  - Alcoholism [Recovered/Resolved]
  - Hepatic failure [Recovered/Resolved]
  - Metastases to lymph nodes [Unknown]
  - Metastases to pancreas [Unknown]
  - Metastases to pelvis [Unknown]
  - Lung neoplasm malignant [Recovering/Resolving]
  - Drug ineffective [Recovering/Resolving]
  - Central nervous system lesion [Recovering/Resolving]

NARRATIVE: CASE EVENT DATE: 20210101
